FAERS Safety Report 22751001 (Version 2)
Quarter: 2023Q4

REPORT INFORMATION
  Report Type: Spontaneous
  Country: US (occurrence: US)
  Receive Date: 20230726
  Receipt Date: 20231205
  Transmission Date: 20240110
  Serious: Yes (Other)
  Sender: FDA-Public Use
  Company Number: US-JNJFOC-20230748784

PATIENT
  Age: 2 Year
  Sex: Male

DRUGS (7)
  1. TYLENOL REGULAR STRENGTH [Suspect]
     Active Substance: ACETAMINOPHEN
     Indication: Pain
     Dosage: 7 OR MORE TIMES PER WEEK, FIRST, SECOND AND THIRD TRIMESTER
     Route: 064
     Dates: start: 201905, end: 202001
  2. TYLENOL EXTRA STRENGTH [Suspect]
     Active Substance: ACETAMINOPHEN
     Indication: Pain
     Dosage: 7 OR MORE TIMES PER WEEK, FIRST, SECOND AND THIRD TRIMESTER
     Route: 064
     Dates: start: 201905, end: 202001
  3. ACETAMINOPHEN [Suspect]
     Active Substance: ACETAMINOPHEN
     Indication: Pain
     Dosage: 7 OR MORE TIMES PER WEEK, FIRST, SECOND AND THIRD TRIMESTER
     Route: 064
     Dates: start: 201905, end: 202001
  4. ACETAMINOPHEN [Suspect]
     Active Substance: ACETAMINOPHEN
     Indication: Pain
     Dosage: 7 OR MORE TIMES PER WEEK, FIRST, SECOND AND THIRD TRIMESTER
     Route: 064
     Dates: start: 201905, end: 202001
  5. CONCERTA [Concomitant]
     Active Substance: METHYLPHENIDATE HYDROCHLORIDE
     Indication: Affective disorder
     Route: 064
     Dates: start: 200908, end: 201401
  6. PROGESTERONE [Concomitant]
     Active Substance: PROGESTERONE
     Indication: Delivery
     Route: 065
     Dates: start: 201908, end: 202001
  7. AMOXICILLIN [Concomitant]
     Active Substance: AMOXICILLIN
     Indication: Urinary tract infection
     Route: 064
     Dates: start: 201905, end: 202001

REACTIONS (2)
  - Autism spectrum disorder [Unknown]
  - Foetal exposure during pregnancy [Unknown]

NARRATIVE: CASE EVENT DATE: 20220201
